APPROVED DRUG PRODUCT: MIRTAZAPINE
Active Ingredient: MIRTAZAPINE
Strength: 45MG
Dosage Form/Route: TABLET;ORAL
Application: A219919 | Product #004 | TE Code: AB
Applicant: NOVITIUM PHARMA LLC
Approved: Feb 2, 2026 | RLD: No | RS: No | Type: RX